FAERS Safety Report 23688516 (Version 1)
Quarter: 2024Q1

REPORT INFORMATION
  Report Type: Spontaneous
  Country: US (occurrence: US)
  Receive Date: 20240329
  Receipt Date: 20240329
  Transmission Date: 20240410
  Serious: No
  Sender: FDA-Public Use
  Company Number: US-TEVA-VS-3160339

PATIENT
  Age: 28 Year
  Sex: Female

DRUGS (1)
  1. AJOVY [Suspect]
     Active Substance: FREMANEZUMAB-VFRM
     Indication: Migraine
     Dosage: DOSAGE: 1.5 ML
     Route: 065
     Dates: start: 20230924

REACTIONS (3)
  - Injection site pain [Unknown]
  - Device issue [Unknown]
  - Accidental exposure to product [Unknown]
